FAERS Safety Report 12520735 (Version 1)
Quarter: 2016Q2

REPORT INFORMATION
  Report Type: Spontaneous
  Country: US (occurrence: None)
  Receive Date: 20160630
  Receipt Date: 20160630
  Transmission Date: 20160815
  Serious: No
  Sender: FDA-Public Use
  Company Number: None

PATIENT
  Sex: Female

DRUGS (3)
  1. TRULICITY [Suspect]
     Active Substance: DULAGLUTIDE
  2. IMODIUM [Suspect]
     Active Substance: LOPERAMIDE HYDROCHLORIDE
  3. LYRICA [Suspect]
     Active Substance: PREGABALIN

REACTIONS (6)
  - Diabetic nephropathy [None]
  - Abdominal discomfort [None]
  - Weight increased [None]
  - Glycosylated haemoglobin increased [None]
  - Eye operation [None]
  - Diabetic retinal oedema [None]
